FAERS Safety Report 6408707-1 (Version None)
Quarter: 2009Q4

REPORT INFORMATION
  Report Type: 
  Country: None (occurrence: None)
  Receive Date: 20091021
  Receipt Date: 20091016
  Transmission Date: 20100525
  Serious: Yes (Other)
  Sender: FDA-Public Use
  Company Number: GB-JNJFOC-20090502588

PATIENT
  Sex: Male
  Weight: 78 kg

DRUGS (18)
  1. PREZISTA [Suspect]
     Indication: HIV INFECTION
     Route: 048
  2. INTELENCE [Suspect]
     Indication: HIV INFECTION
     Route: 048
  3. RITONAVIR [Suspect]
     Indication: HIV INFECTION
  4. RALTEGRAVIR [Suspect]
     Indication: HIV INFECTION
  5. PREGABALIN [Concomitant]
  6. MORPHINE SULFATE [Concomitant]
  7. ORAMORPH SR [Concomitant]
  8. DAPSONE [Concomitant]
  9. PYRIMETHAMINE TAB [Concomitant]
  10. VALGANCICLOVIR HCL [Concomitant]
  11. DOMPERIDONE [Concomitant]
  12. AZITHROMYCIN [Concomitant]
  13. CALCIUM [Concomitant]
  14. SODIUM DOCUSATE [Concomitant]
  15. IBUPROFEN [Concomitant]
  16. TESTIM [Concomitant]
  17. CACIT D3 [Concomitant]
  18. FUROSEMIDE [Concomitant]

REACTIONS (2)
  - BLOOD CHOLESTEROL INCREASED [None]
  - WEIGHT INCREASED [None]
